FAERS Safety Report 6210772-1 (Version None)
Quarter: 2009Q2

REPORT INFORMATION
  Report Type: 
  Country: None (occurrence: None)
  Receive Date: 20090601
  Receipt Date: 20090526
  Transmission Date: 20091009
  Serious: No
  Sender: FDA-Public Use
  Company Number: US-B.I. PHARMACEUTICALS,INC./RIDGEFIELD-2009-BP-06521BP

PATIENT
  Sex: Male

DRUGS (12)
  1. SPIRIVA [Suspect]
     Indication: BRONCHITIS CHRONIC
     Dosage: 18MCG
     Route: 055
     Dates: start: 20080501, end: 20090401
  2. UROXATRAL [Concomitant]
     Indication: POLLAKIURIA
     Dosage: 10MG
     Route: 048
  3. TRIMETHOPRIM [Concomitant]
     Indication: UROGENITAL DISORDER
     Dosage: 100MG
     Route: 048
  4. LAMOTRIGINE [Concomitant]
     Indication: CONVULSION
     Dosage: 150MG
     Route: 048
  5. FLUOXETINE HCL [Concomitant]
     Indication: DEPRESSION
     Dosage: 10MG
     Route: 048
  6. ACIPHEX [Concomitant]
     Indication: GASTROOESOPHAGEAL REFLUX DISEASE
     Dosage: 20MG
     Route: 048
  7. DIAZEPAM [Concomitant]
     Indication: VERTEBRAL ARTERY OCCLUSION
     Dosage: 5MG
     Route: 048
  8. DIAZEPAM [Concomitant]
     Indication: ANXIETY
     Dosage: 2MG
     Route: 048
  9. PROPOXYPHENE-N [Concomitant]
     Indication: PAIN
     Dosage: 100MG
     Route: 048
  10. DOXYCYCLINE [Concomitant]
     Indication: AUTOIMMUNE DISORDER
     Dosage: 500MG
     Route: 048
  11. SYMBICORT [Concomitant]
     Indication: ASTHMA
     Route: 048
  12. SUPER B COMPLEX [Concomitant]
     Indication: ANXIETY
     Route: 048

REACTIONS (5)
  - CATARACT [None]
  - DYSURIA [None]
  - INTRAOCULAR PRESSURE INCREASED [None]
  - POLLAKIURIA [None]
  - VISUAL IMPAIRMENT [None]
